FAERS Safety Report 17614678 (Version 2)
Quarter: 2020Q2

REPORT INFORMATION
  Report Type: Spontaneous
  Country: US (occurrence: US)
  Receive Date: 20200402
  Receipt Date: 20200501
  Transmission Date: 20200713
  Serious: No
  Sender: FDA-Public Use
  Company Number: US-GLAXOSMITHKLINE-US2020054134

PATIENT
  Sex: Female

DRUGS (1)
  1. NUCALA [Suspect]
     Active Substance: MEPOLIZUMAB
     Indication: ASTHMA
     Dosage: 100 MG, CYC
     Route: 042

REACTIONS (5)
  - Sinusitis [Recovered/Resolved]
  - Wheezing [Recovered/Resolved]
  - Asthma [Unknown]
  - Cough [Recovered/Resolved]
  - Increased upper airway secretion [Recovered/Resolved]
